FAERS Safety Report 5045953-6 (Version None)
Quarter: 2006Q3

REPORT INFORMATION
  Report Type: 
  Country: None (occurrence: None)
  Receive Date: 20060710
  Receipt Date: 20050930
  Transmission Date: 20061208
  Serious: Yes (Hospitalization)
  Sender: FDA-Public Use
  Company Number: PHHO2005JP15535

PATIENT
  Age: 79 Year
  Sex: Male
  Weight: 42 kg

DRUGS (4)
  1. DIOVAN [Suspect]
     Indication: HYPERTENSION
     Dosage: 40MG DAILY
     Route: 048
     Dates: start: 20040119, end: 20040219
  2. BUFFERIN [Concomitant]
     Dosage: 81MG DAILY
     Route: 048
     Dates: start: 20010209
  3. ISOSORBIDE MONONITRATE [Concomitant]
     Dosage: 40MG DAILY
     Route: 048
     Dates: start: 20010209
  4. TICLOPIDINE HCL [Concomitant]
     Dosage: 200MG DAILY
     Route: 048
     Dates: start: 20010209

REACTIONS (4)
  - CHEST PAIN [None]
  - INTERSTITIAL LUNG DISEASE [None]
  - PLEURAL EFFUSION [None]
  - PRODUCTIVE COUGH [None]
